FAERS Safety Report 8906763 (Version 2)
Quarter: 2012Q4

REPORT INFORMATION
  Report Type: 
  Country: US (occurrence: US)
  Receive Date: 20121114
  Receipt Date: 20121130
  Transmission Date: 20130627
  Serious: Yes (Death, Hospitalization)
  Sender: FDA-Public Use
  Company Number: US-ELI_LILLY_AND_COMPANY-US201211002041

PATIENT
  Age: 88 Year
  Sex: Female
  Weight: 47.62 kg

DRUGS (10)
  1. FORTEO [Suspect]
     Indication: OSTEOPOROSIS
     Dosage: 20 ug, qd
     Dates: start: 20120529, end: 20120918
  2. ARICEPT [Concomitant]
     Dosage: 10 mg, qd
     Route: 048
     Dates: start: 20120612
  3. PROLIA [Concomitant]
     Dosage: 1 DF, qd
     Route: 058
     Dates: start: 20120313
  4. LIPITOR [Concomitant]
     Dosage: 10 mg, qd
     Route: 048
     Dates: start: 20110510
  5. WARFARIN SODIUM [Concomitant]
     Dosage: 1 mg, qd
     Route: 048
     Dates: start: 20080729
  6. METOPROLOL SUCCINATE [Concomitant]
     Dosage: 25 mg, qd
     Route: 048
     Dates: start: 20080404
  7. TORSEMIDE [Concomitant]
     Dosage: 20 mg, qd
     Route: 048
     Dates: start: 20080404
  8. ALDACTONE [Concomitant]
     Dosage: 25 mg, qd
     Route: 048
     Dates: start: 20071204
  9. COUMADIN [Concomitant]
     Dosage: 2.5 mg, qd
     Route: 048
     Dates: start: 20071204
  10. LORTAB [Concomitant]
     Indication: BACK PAIN
     Dosage: 1 5-500 mg tab, every 6 hrs prn
     Route: 048
     Dates: start: 20120816

REACTIONS (3)
  - Cardiac failure congestive [Fatal]
  - Anaemia [Unknown]
  - Hyperkalaemia [Unknown]
